FAERS Safety Report 9175321 (Version 1)
Quarter: 2013Q1

REPORT INFORMATION
  Report Type: Spontaneous
  Country: DE (occurrence: DE)
  Receive Date: 20130320
  Receipt Date: 20130320
  Transmission Date: 20140127
  Serious: Yes (Death)
  Sender: FDA-Public Use
  Company Number: DE-TEVA-391670GER

PATIENT
  Age: 57 Year
  Sex: Female
  Weight: 72 kg

DRUGS (5)
  1. GEMCITABINE [Suspect]
     Indication: PANCREATIC CARCINOMA
     Route: 042
     Dates: start: 20120906, end: 201302
  2. KREON [Concomitant]
     Dosage: 30000 IU (INTERNATIONAL UNIT) DAILY;
     Route: 048
  3. BISOPROLOL [Concomitant]
     Dosage: 5 MILLIGRAM DAILY;
     Route: 048
  4. TAZOBAC [Concomitant]
     Dosage: 13.5 GRAM DAILY;
     Route: 042
     Dates: start: 20130221, end: 20130224
  5. ROCEPHIN [Concomitant]
     Dosage: 2 GRAM DAILY;
     Route: 042
     Dates: start: 20130219, end: 20130221

REACTIONS (5)
  - Cardiac arrest [Fatal]
  - Renal failure acute [Fatal]
  - Haemolysis [Fatal]
  - Microangiopathic haemolytic anaemia [Fatal]
  - Thrombocytopenia [Fatal]
